FAERS Safety Report 8602297 (Version 9)
Quarter: 2020Q4

REPORT INFORMATION
  Report Type: Spontaneous
  Country: GB (occurrence: GB)
  Receive Date: 20120607
  Receipt Date: 20201013
  Transmission Date: 20210114
  Serious: Yes (Death, Hospitalization, Other)
  Sender: FDA-Public Use
  Company Number: GB-RANBAXY-2012R1-56878

PATIENT
  Age: 40 Year
  Sex: Male
  Weight: 104 kg

DRUGS (32)
  1. METHADONE [Interacting]
     Active Substance: METHADONE HYDROCHLORIDE
     Indication: PAIN
     Dosage: 45 ML, BID
     Route: 048
  2. HUMIRA [Suspect]
     Active Substance: ADALIMUMAB
     Dosage: 40 MG, 1/2WEEKS
     Route: 065
  3. VENTOLIN [Concomitant]
     Active Substance: ALBUTEROL SULFATE
     Indication: PRODUCT USED FOR UNKNOWN INDICATION
     Dosage: 100 ?G, AS NECESSARY
     Route: 055
  4. MST CONTINUS [Concomitant]
     Active Substance: MORPHINE SULFATE
     Indication: PAIN
     Dosage: 20 MG, QD
     Route: 048
  5. VITAMIN SUPPLEMENT [Concomitant]
     Active Substance: VITAMINS
     Indication: NUTRITIONAL SUPPLEMENTATION
     Dosage: 1 DF, QD
     Route: 065
  6. METHADONE [Interacting]
     Active Substance: METHADONE HYDROCHLORIDE
     Dosage: 45 MG, BID
     Route: 048
  7. METHADONE [Interacting]
     Active Substance: METHADONE HYDROCHLORIDE
     Dosage: UNK
     Route: 065
  8. HUMIRA [Suspect]
     Active Substance: ADALIMUMAB
     Dosage: 40 MG, 1 WEEKS
     Route: 030
  9. ADCAL-D3 [Concomitant]
     Active Substance: CALCIUM CARBONATE\CHOLECALCIFEROL
     Indication: CROHN^S DISEASE
     Dosage: 1 DF, BID
     Route: 048
  10. ADCAL-D3 [Concomitant]
     Active Substance: CALCIUM CARBONATE\CHOLECALCIFEROL
     Indication: PROPHYLAXIS
  11. MULTIVITAMIN [Concomitant]
     Active Substance: VITAMINS
     Indication: PRODUCT USED FOR UNKNOWN INDICATION
     Dosage: UNK
     Route: 065
  12. HUMIRA [Suspect]
     Active Substance: ADALIMUMAB
     Indication: CROHN^S DISEASE
     Dosage: 40 DF, FORTNIGHT
     Route: 058
  13. ADCAL-D3 [Concomitant]
     Active Substance: CALCIUM CARBONATE\CHOLECALCIFEROL
     Indication: BONE DISORDER
  14. HYDROXOCOBALAMIN [Concomitant]
     Active Substance: HYDROXOCOBALAMIN
     Indication: VITAMIN D DEFICIENCY
     Dosage: UNK
     Route: 065
  15. CLARITHROMYCIN. [Interacting]
     Active Substance: CLARITHROMYCIN
     Indication: PHARYNGITIS
  16. METHADONE [Interacting]
     Active Substance: METHADONE HYDROCHLORIDE
     Indication: CROHN^S DISEASE
     Dosage: 40 ML, BID
     Route: 048
  17. METHADONE [Interacting]
     Active Substance: METHADONE HYDROCHLORIDE
     Dosage: 80 MILLILITER
     Route: 048
     Dates: start: 20111027
  18. PARACETAMOL [Concomitant]
     Active Substance: ACETAMINOPHEN
     Indication: PAIN
     Dosage: 1 G, QID
     Route: 065
  19. METHADONE [Interacting]
     Active Substance: METHADONE HYDROCHLORIDE
     Indication: ABDOMINAL PAIN
     Dosage: 35 ML, BID
     Route: 048
     Dates: end: 20111030
  20. LANSOPRAZOLE. [Concomitant]
     Active Substance: LANSOPRAZOLE
     Indication: GASTRITIS
     Dosage: 30 MG, QD
     Route: 048
  21. LANSOPRAZOLE. [Concomitant]
     Active Substance: LANSOPRAZOLE
     Indication: DYSPEPSIA
     Dosage: 30 MG, QD
     Route: 065
  22. ASCORBIC ACID. [Concomitant]
     Active Substance: ASCORBIC ACID
     Indication: PRODUCT USED FOR UNKNOWN INDICATION
     Dosage: UNK
     Route: 048
  23. HUMIRA [Suspect]
     Active Substance: ADALIMUMAB
     Dosage: 80 MG, 1/2WEEKS
     Route: 058
  24. ORAMORPH [Concomitant]
     Active Substance: MORPHINE SULFATE
     Indication: PAIN
     Dosage: 100 MG, QD
     Route: 048
  25. DIAZEPAM. [Concomitant]
     Active Substance: DIAZEPAM
     Indication: ANXIETY
     Dosage: 2 MG, AS NECESSARY
     Route: 048
  26. DIAZEPAM. [Concomitant]
     Active Substance: DIAZEPAM
     Indication: CROHN^S DISEASE
     Dosage: 2 MG, AS NECESSARY
     Route: 048
  27. CLARITHROMYCIN. [Suspect]
     Active Substance: CLARITHROMYCIN
     Indication: INFECTION
     Dosage: 500 MG, BID
     Route: 048
  28. CLARITHROMYCIN. [Interacting]
     Active Substance: CLARITHROMYCIN
     Indication: LOWER RESPIRATORY TRACT INFECTION
  29. METHADONE [Interacting]
     Active Substance: METHADONE HYDROCHLORIDE
     Dosage: 35 MG, BID
     Route: 048
  30. HUMIRA [Suspect]
     Active Substance: ADALIMUMAB
     Dosage: 160 MG, 1/2WEEKS
     Route: 058
  31. ORAMORPH [Concomitant]
     Active Substance: MORPHINE SULFATE
     Indication: CROHN^S DISEASE
     Dosage: 100 MG, QD
     Route: 048
  32. ORAMORPH [Concomitant]
     Active Substance: MORPHINE SULFATE
     Indication: ABDOMINAL PAIN
     Dosage: UNK
     Route: 065

REACTIONS (45)
  - Pain [Unknown]
  - Dysarthria [Unknown]
  - Crohn^s disease [Fatal]
  - Crohn^s disease [Unknown]
  - Influenza [Unknown]
  - Potentiating drug interaction [Fatal]
  - Rectal haemorrhage [Unknown]
  - Somnolence [Unknown]
  - Dysarthria [Unknown]
  - Aggression [Unknown]
  - Vision blurred [Unknown]
  - Confusional state [Unknown]
  - Dysuria [Unknown]
  - Rectal haemorrhage [Unknown]
  - Inflammatory marker increased [Unknown]
  - White blood cell count increased [Unknown]
  - C-reactive protein increased [Unknown]
  - Malaise [Unknown]
  - Headache [Unknown]
  - Hyperhidrosis [Unknown]
  - Adverse drug reaction [Unknown]
  - Pyrexia [Not Recovered/Not Resolved]
  - Aggression [Unknown]
  - Malaise [Unknown]
  - Pneumonitis [Unknown]
  - Death [Fatal]
  - Blood urine [Unknown]
  - Heart rate increased [Unknown]
  - Oropharyngeal pain [Unknown]
  - Immunosuppression [Unknown]
  - Incorrect dose administered [Unknown]
  - Chest pain [Unknown]
  - Confusional state [Unknown]
  - Hyperhidrosis [Unknown]
  - Inhibitory drug interaction [Fatal]
  - Diffuse alveolar damage [Fatal]
  - Toxicity to various agents [Fatal]
  - Dysuria [Unknown]
  - Hiccups [Unknown]
  - Erythema [Unknown]
  - Pharyngeal erythema [Unknown]
  - Tremor [Unknown]
  - Vomiting [Unknown]
  - Dizziness [Unknown]
  - Diplopia [Unknown]

NARRATIVE: CASE EVENT DATE: 20011021
